FAERS Safety Report 4617212-4 (Version None)
Quarter: 2005Q1

REPORT INFORMATION
  Report Type: 
  Country: None (occurrence: None)
  Receive Date: 20050323
  Receipt Date: 20050309
  Transmission Date: 20050727
  Serious: Yes (Hospitalization)
  Sender: FDA-Public Use
  Company Number: PHHO2005CA04265

PATIENT
  Age: 46 Year
  Sex: Male

DRUGS (1)
  1. CLOZARIL [Suspect]
     Route: 048
     Dates: start: 20000623, end: 20050309

REACTIONS (2)
  - BLOOD PRESSURE DECREASED [None]
  - CARDIOMYOPATHY [None]
